FAERS Safety Report 7608699-3 (Version None)
Quarter: 2011Q3

REPORT INFORMATION
  Report Type: 
  Country: None (occurrence: None)
  Receive Date: 20110713
  Receipt Date: 20110713
  Transmission Date: 20111222
  Serious: No
  Sender: FDA-Public Use
  Company Number: None

PATIENT
  Age: 75 Year
  Sex: Female
  Weight: 78.0187 kg

DRUGS (1)
  1. BONIVA [Suspect]
     Indication: BONE DENSITY DECREASED
     Dosage: 150MG MONTHLY PO
     Route: 048
     Dates: start: 20100801, end: 20101022

REACTIONS (5)
  - PAIN IN EXTREMITY [None]
  - GAIT DISTURBANCE [None]
  - ARTHRITIS [None]
  - EXOSTOSIS [None]
  - PRODUCT LABEL ISSUE [None]
